FAERS Safety Report 12780563 (Version 1)
Quarter: 2016Q3

REPORT INFORMATION
  Report Type: Spontaneous
  Country: US (occurrence: US)
  Receive Date: 20160926
  Receipt Date: 20160926
  Transmission Date: 20161109
  Serious: No
  Sender: FDA-Public Use
  Company Number: None

PATIENT
  Age: 66 Year
  Sex: Male

DRUGS (1)
  1. LIDOCAINE 5% PATCH [Suspect]
     Active Substance: LIDOCAINE
     Indication: PAIN
     Dosage: 1 PATCH 12H ON 12H OFF TRANSDERMAL
     Dates: start: 20160913

REACTIONS (3)
  - Product label confusion [None]
  - Device ineffective [None]
  - Product substitution issue [None]

NARRATIVE: CASE EVENT DATE: 20160914
